FAERS Safety Report 6042519-6 (Version None)
Quarter: 2009Q1

REPORT INFORMATION
  Report Type: 
  Country: None (occurrence: None)
  Receive Date: 20090117
  Receipt Date: 20090106
  Transmission Date: 20090719
  Serious: Yes (Hospitalization)
  Sender: FDA-Public Use
  Company Number: US-JNJFOC-20081202015

PATIENT
  Sex: Female

DRUGS (1)
  1. REMICADE [Suspect]
     Indication: COLITIS ULCERATIVE
     Route: 042

REACTIONS (7)
  - ABASIA [None]
  - ASTHENIA [None]
  - FALL [None]
  - INFECTION [None]
  - OEDEMA PERIPHERAL [None]
  - RENAL FAILURE [None]
  - SKIN ULCER [None]
